FAERS Safety Report 13638444 (Version 2)
Quarter: 2018Q3

REPORT INFORMATION
  Report Type: Spontaneous
  Country: FR (occurrence: FR)
  Receive Date: 20170609
  Receipt Date: 20180822
  Transmission Date: 20181010
  Serious: Yes (Other)
  Sender: FDA-Public Use
  Company Number: FR-SA-2017SA101625

PATIENT
  Age: 49 Year
  Sex: Female

DRUGS (2)
  1. MYTELASE [Suspect]
     Active Substance: AMBENONIUM CHLORIDE
     Indication: MUSCULAR WEAKNESS
     Dosage: 10 MG,QD
     Route: 048
     Dates: start: 2013, end: 2018
  2. MESTINON [Suspect]
     Active Substance: PYRIDOSTIGMINE BROMIDE
     Indication: MUSCULAR WEAKNESS
     Dosage: 3 DF,QD
     Route: 048
     Dates: start: 201308

REACTIONS (2)
  - Rhinorrhoea [Recovered/Resolved]
  - Bronchial obstruction [Recovered/Resolved]

NARRATIVE: CASE EVENT DATE: 201602
